FAERS Safety Report 18447708 (Version 3)
Quarter: 2022Q1

REPORT INFORMATION
  Report Type: Spontaneous
  Country: BR (occurrence: BR)
  Receive Date: 20201031
  Receipt Date: 20220228
  Transmission Date: 20220423
  Serious: Yes (Other)
  Sender: FDA-Public Use
  Company Number: BR-ABBVIE-20K-020-3627470-00

PATIENT
  Sex: Female

DRUGS (4)
  1. HUMIRA [Suspect]
     Active Substance: ADALIMUMAB
     Indication: Crohn^s disease
     Route: 058
     Dates: start: 2015
  2. HUMIRA [Suspect]
     Active Substance: ADALIMUMAB
     Indication: Crohn^s disease
     Route: 058
  3. HUMIRA [Suspect]
     Active Substance: ADALIMUMAB
     Route: 058
  4. HUMIRA [Suspect]
     Active Substance: ADALIMUMAB
     Route: 058

REACTIONS (25)
  - Psychotic disorder [Recovered/Resolved]
  - Psychotic disorder [Unknown]
  - Illness [Not Recovered/Not Resolved]
  - Panic reaction [Not Recovered/Not Resolved]
  - Wrong technique in product usage process [Unknown]
  - Osteoarthritis [Unknown]
  - Neurosis [Not Recovered/Not Resolved]
  - Spondylitis [Unknown]
  - Uveitis [Unknown]
  - Product storage error [Unknown]
  - Haemorrhage [Unknown]
  - Memory impairment [Unknown]
  - Depression [Not Recovered/Not Resolved]
  - Flatulence [Unknown]
  - Abdominal rigidity [Unknown]
  - Visual impairment [Unknown]
  - Injury [Unknown]
  - Oropharyngeal pain [Unknown]
  - Crohn^s disease [Unknown]
  - Onychalgia [Unknown]
  - Injection site pain [Unknown]
  - Pain [Unknown]
  - Spinal pain [Unknown]
  - Memory impairment [Unknown]
  - Psychotic disorder [Recovered/Resolved]

NARRATIVE: CASE EVENT DATE: 20160101
